FAERS Safety Report 7018427-0 (Version None)
Quarter: 2010Q3

REPORT INFORMATION
  Report Type: 
  Country: None (occurrence: None)
  Receive Date: 20100928
  Receipt Date: 20100920
  Transmission Date: 20110219
  Serious: Yes (Hospitalization)
  Sender: FDA-Public Use
  Company Number: NL-ABBOTT-10P-114-0672054-00

PATIENT
  Sex: Male

DRUGS (10)
  1. HUMIRA [Suspect]
     Indication: CROHN'S DISEASE
     Dates: start: 20100726
  2. HYDROCHLOROTHIAZIDE [Concomitant]
     Indication: HYPERTENSION
     Dosage: 1/2 TABLET DAILY
     Route: 048
  3. CLOMIPRAMINE [Concomitant]
     Indication: AGGRESSION
     Route: 048
  4. ENALAPRIL MALEATE [Concomitant]
     Indication: HYPERTENSION
     Dates: start: 20100829
  5. SOKA [Concomitant]
     Indication: PRODUCT USED FOR UNKNOWN INDICATION
     Dosage: 600MG X 1 UNIT DAILY
     Dates: start: 20100829
  6. LOPERAMIDE [Concomitant]
     Indication: PRODUCT USED FOR UNKNOWN INDICATION
     Route: 048
  7. TRIAMCINOLONE [Concomitant]
     Indication: PRODUCT USED FOR UNKNOWN INDICATION
  8. VITAMIN B COMPLEX FORTE [Concomitant]
     Indication: PRODUCT USED FOR UNKNOWN INDICATION
  9. THERANAL [Concomitant]
     Indication: PRODUCT USED FOR UNKNOWN INDICATION
     Dosage: HEMORRHOID OINTMENT
  10. PROCTOSEDYL [Concomitant]
     Indication: PRODUCT USED FOR UNKNOWN INDICATION

REACTIONS (18)
  - APHASIA [None]
  - ASTHENIA [None]
  - BLOOD POTASSIUM DECREASED [None]
  - CARDIAC ENZYMES INCREASED [None]
  - CHEST DISCOMFORT [None]
  - COUGH [None]
  - DIZZINESS [None]
  - DYSPNOEA [None]
  - DYSPNOEA EXERTIONAL [None]
  - INFLAMMATION [None]
  - MALAISE [None]
  - NAUSEA [None]
  - PALPITATIONS [None]
  - POTENTIATING DRUG INTERACTION [None]
  - PRURITUS [None]
  - SENSATION OF FOREIGN BODY [None]
  - SKIN PAPILLOMA [None]
  - WHITE BLOOD CELL COUNT DECREASED [None]
